FAERS Safety Report 4778069-4 (Version None)
Quarter: 2005Q3

REPORT INFORMATION
  Report Type: 
  Country: None (occurrence: None)
  Receive Date: 20050922
  Receipt Date: 20050907
  Transmission Date: 20060218
  Serious: Yes (Other)
  Sender: FDA-Public Use
  Company Number: US-2005-018571

PATIENT
  Age: 43 Year
  Sex: Female

DRUGS (1)
  1. BETASERON [Suspect]
     Indication: SECONDARY PROGRESSIVE MULTIPLE SCLEROSIS
     Dosage: 8 MIU, EVERY 2D, SUBCUTANEOUS
     Route: 058
     Dates: start: 20050318

REACTIONS (6)
  - BLOOD POTASSIUM DECREASED [None]
  - DIPLOPIA [None]
  - DYSPNOEA [None]
  - SINUS TACHYCARDIA [None]
  - VERTIGO [None]
  - VOMITING [None]
